FAERS Safety Report 25966417 (Version 1)
Quarter: 2025Q4

REPORT INFORMATION
  Report Type: Spontaneous
  Country: US (occurrence: US)
  Receive Date: 20251028
  Receipt Date: 20251028
  Transmission Date: 20260118
  Serious: No
  Sender: PADAGIS
  Company Number: US-PADAGIS-2025PAD01313

PATIENT

DRUGS (3)
  1. CLOBETASOL PROPIONATE (EMMOLIENT) [Suspect]
     Active Substance: CLOBETASOL PROPIONATE
     Indication: Infusion site reaction
     Dosage: UNK
     Route: 061
  2. TRIAMCINOLONE ACETONIDE [Suspect]
     Active Substance: TRIAMCINOLONE ACETONIDE
     Indication: Infusion site reaction
     Dosage: UNK
     Route: 065
  3. TREPROSTINIL [Concomitant]
     Active Substance: TREPROSTINIL
     Indication: Pulmonary hypertension
     Dosage: COMBINATION THERAPY, CONTINUOUS SUBCUTANEOUS INFUSION
     Route: 058

REACTIONS (2)
  - Drug ineffective [Unknown]
  - Product use issue [Unknown]
